FAERS Safety Report 24325006 (Version 3)
Quarter: 2024Q4

REPORT INFORMATION
  Report Type: Spontaneous
  Country: US (occurrence: US)
  Receive Date: 20240916
  Receipt Date: 20241009
  Transmission Date: 20250114
  Serious: No
  Sender: ALEXION PHARMACEUTICALS
  Company Number: 2024A204871

PATIENT
  Age: 74 Year
  Weight: 87.543 kg

DRUGS (1)
  1. CALQUENCE [Suspect]
     Active Substance: ACALABRUTINIB
     Indication: Chronic lymphocytic leukaemia recurrent
     Dosage: 100 MILLIGRAM, QD

REACTIONS (1)
  - Contusion [Not Recovered/Not Resolved]
